FAERS Safety Report 10676089 (Version 2)
Quarter: 2015Q3

REPORT INFORMATION
  Report Type: Spontaneous
  Country: GB (occurrence: GB)
  Receive Date: 20141225
  Receipt Date: 20150916
  Transmission Date: 20151125
  Serious: Yes (Hospitalization)
  Sender: FDA-Public Use
  Company Number: GB-AUROBINDO-AUR-APL-2014-13093

PATIENT
  Age: 41 Year
  Sex: Male

DRUGS (7)
  1. NAPROXEN 500MG [Suspect]
     Active Substance: NAPROXEN
     Indication: GOUT
     Dosage: 500 MG, TWO TIMES A DAY
     Route: 048
     Dates: end: 201411
  2. SALBUTAMOL [Concomitant]
     Active Substance: ALBUTEROL
     Indication: PRODUCT USED FOR UNKNOWN INDICATION
     Dosage: UNK
     Route: 065
  3. IBUPROFEN. [Suspect]
     Active Substance: IBUPROFEN
     Indication: GOUT
     Dosage: THREE TO FOUR TIMES DAILY.
     Route: 048
     Dates: end: 201411
  4. COCODAMOL [Concomitant]
     Active Substance: ACETAMINOPHEN\CODEINE PHOSPHATE
     Indication: PRODUCT USED FOR UNKNOWN INDICATION
     Dosage: UNK
     Route: 065
  5. NAPROXEN. [Suspect]
     Active Substance: NAPROXEN
     Indication: GOUT
     Route: 048
     Dates: end: 201411
  6. QVAR [Concomitant]
     Active Substance: BECLOMETHASONE DIPROPIONATE
     Indication: PRODUCT USED FOR UNKNOWN INDICATION
     Dosage: UNK
     Route: 065
  7. IBUPROFEN 400 MG TABLETS [Suspect]
     Active Substance: IBUPROFEN
     Indication: GOUT
     Dosage: 400 MG, THREE TO FOUR TIMES DAILY
     Route: 048
     Dates: start: 201401

REACTIONS (2)
  - Medication error [Unknown]
  - Acute kidney injury [Unknown]

NARRATIVE: CASE EVENT DATE: 20141128
